FAERS Safety Report 20412356 (Version 1)
Quarter: 2022Q1

REPORT INFORMATION
  Report Type: Spontaneous
  Country: DE (occurrence: DE)
  Receive Date: 20220201
  Receipt Date: 20220201
  Transmission Date: 20220423
  Serious: Yes (Other)
  Sender: FDA-Public Use
  Company Number: DE-NOVARTISPH-NVSC2022DE020761

PATIENT
  Age: 22 Year
  Sex: Female

DRUGS (1)
  1. BUDESONIDE [Suspect]
     Active Substance: BUDESONIDE
     Indication: Protein-losing gastroenteropathy
     Dosage: UNK
     Route: 048

REACTIONS (4)
  - Osteoporosis [Unknown]
  - Spinal fracture [Unknown]
  - Product use in unapproved indication [Unknown]
  - Off label use [Unknown]
